FAERS Safety Report 5527852-6 (Version None)
Quarter: 2007Q4

REPORT INFORMATION
  Report Type: 
  Country: None (occurrence: None)
  Receive Date: 20071123
  Receipt Date: 20071119
  Transmission Date: 20080405
  Serious: Yes (Other)
  Sender: FDA-Public Use
  Company Number: 2007SP018097

PATIENT
  Age: 62 Year
  Sex: Male
  Weight: 73 kg

DRUGS (7)
  1. PEG-INTRON [Suspect]
     Indication: HEPATITIS C
     Dosage: 100 MCG; QW; SC
     Route: 058
     Dates: start: 20060405, end: 20060414
  2. REBETOL [Suspect]
     Indication: HEPATITIS C
     Dosage: 800 MG;QD;PO;  600 MG;QD;PO
     Route: 048
     Dates: start: 20060405, end: 20060720
  3. REBETOL [Suspect]
     Indication: HEPATITIS C
     Dosage: 800 MG;QD;PO;  600 MG;QD;PO
     Route: 048
     Dates: start: 20060721, end: 20060914
  4. PROMAC [Concomitant]
  5. VOLTAREN [Concomitant]
  6. AMLODIN [Concomitant]
  7. ALOSITOL [Concomitant]

REACTIONS (4)
  - ANAEMIA [None]
  - ANOREXIA [None]
  - ASCITES [None]
  - HYPOALBUMINAEMIA [None]
